FAERS Safety Report 14881280 (Version 14)
Quarter: 2021Q3

REPORT INFORMATION
  Report Type: Report from Study
  Country: CA (occurrence: CA)
  Receive Date: 20180511
  Receipt Date: 20210706
  Transmission Date: 20211014
  Serious: Yes (Hospitalization, Other)
  Sender: FDA-Public Use
  Company Number: PHHY2018CA005319

PATIENT
  Age: 65 Year
  Sex: Female

DRUGS (48)
  1. XOLAIR [Suspect]
     Active Substance: OMALIZUMAB
     Dosage: 225 MG, BIW
     Route: 058
     Dates: start: 20180419
  2. XOLAIR [Suspect]
     Active Substance: OMALIZUMAB
     Dosage: 225 MG, BIW
     Route: 058
     Dates: start: 20180629
  3. XOLAIR [Suspect]
     Active Substance: OMALIZUMAB
     Dosage: 225 MG, BIW
     Route: 058
     Dates: start: 20190709
  4. XOLAIR [Suspect]
     Active Substance: OMALIZUMAB
     Dosage: 375 MG, BIW
     Route: 058
  5. XOLAIR [Suspect]
     Active Substance: OMALIZUMAB
     Dosage: 225 MG, BIW
     Route: 058
  6. PREDNISONE. [Suspect]
     Active Substance: PREDNISONE
     Dosage: 17.5 MG, QD
     Route: 048
     Dates: start: 20180111
  7. ZINC. [Suspect]
     Active Substance: ZINC
     Indication: PRODUCT USED FOR UNKNOWN INDICATION
     Dosage: UNK
     Route: 065
  8. METFORMIN [Concomitant]
     Active Substance: METFORMIN HYDROCHLORIDE
     Indication: PRODUCT USED FOR UNKNOWN INDICATION
     Dosage: BID
     Route: 065
  9. XOLAIR [Suspect]
     Active Substance: OMALIZUMAB
     Dosage: 225 MG, BIW
     Route: 058
     Dates: start: 20180614
  10. XOLAIR [Suspect]
     Active Substance: OMALIZUMAB
     Dosage: 225 MG, BIW
     Route: 058
     Dates: start: 20181228
  11. XOLAIR [Suspect]
     Active Substance: OMALIZUMAB
     Dosage: 225 MG, BIW
     Route: 058
     Dates: start: 20190723
  12. XOLAIR [Suspect]
     Active Substance: OMALIZUMAB
     Dosage: 225 MG, BIW
     Route: 058
     Dates: start: 20191015
  13. XOLAIR [Suspect]
     Active Substance: OMALIZUMAB
     Dosage: 225 MG, BIW
     Route: 058
     Dates: start: 20200303
  14. MEPERIDINE HYDROCHLORIDE. [Suspect]
     Active Substance: MEPERIDINE HYDROCHLORIDE
     Indication: PRODUCT USED FOR UNKNOWN INDICATION
     Dosage: UNK
     Route: 065
  15. ATORVASTATIN [Concomitant]
     Active Substance: ATORVASTATIN
     Indication: PRODUCT USED FOR UNKNOWN INDICATION
     Dosage: 1 DF, QD
     Route: 065
  16. DILTIAZEM. [Concomitant]
     Active Substance: DILTIAZEM
     Indication: PRODUCT USED FOR UNKNOWN INDICATION
     Dosage: 1 DF, QD
     Route: 048
  17. LASIX [Concomitant]
     Active Substance: FUROSEMIDE
     Dosage: 1 DF, QD (60 MG)
     Route: 065
  18. KEFLEX [Concomitant]
     Active Substance: CEPHALEXIN
     Indication: HAEMATURIA
     Dosage: UNK
     Route: 065
  19. XOLAIR [Suspect]
     Active Substance: OMALIZUMAB
     Dosage: 225 MG, BIW
     Route: 058
     Dates: start: 20171101
  20. XOLAIR [Suspect]
     Active Substance: OMALIZUMAB
     Dosage: UNK
     Route: 058
     Dates: start: 20171228
  21. XOLAIR [Suspect]
     Active Substance: OMALIZUMAB
     Dosage: 225 MG, BIW
     Route: 058
     Dates: start: 2020
  22. XOLAIR [Suspect]
     Active Substance: OMALIZUMAB
     Dosage: 225 MG, BIW
     Route: 058
     Dates: start: 20200512
  23. VENTOLIN [Concomitant]
     Active Substance: ALBUTEROL SULFATE
     Indication: ASTHMA
     Dosage: 4 DF, UNK
     Route: 055
     Dates: start: 2010
  24. TUDORZA GENUAIR [Concomitant]
     Active Substance: ACLIDINIUM BROMIDE
     Indication: ASTHMA
     Dosage: 2 DF, BID
     Route: 055
  25. ZENHALE [Concomitant]
     Active Substance: FORMOTEROL FUMARATE\MOMETASONE FUROATE
     Indication: ASTHMA
     Dosage: 2 DF, QID
     Route: 055
     Dates: start: 201703
  26. XOLAIR [Suspect]
     Active Substance: OMALIZUMAB
     Dosage: 225 MG, BIW
     Route: 058
     Dates: start: 20171201
  27. PREDNISONE. [Suspect]
     Active Substance: PREDNISONE
     Dosage: 10 MG
     Route: 065
     Dates: start: 20200623
  28. PREDNISONE. [Suspect]
     Active Substance: PREDNISONE
     Dosage: 10 MG, UNKNOWN(TREATMENT)
     Route: 065
     Dates: start: 20210220
  29. LASIX [Concomitant]
     Active Substance: FUROSEMIDE
     Indication: PRODUCT USED FOR UNKNOWN INDICATION
     Dosage: 1 DF, QD (20 MG)
     Route: 048
  30. PIPERACILLIN AND TAZOBACTAM [Concomitant]
     Active Substance: PIPERACILLIN SODIUM\TAZOBACTAM SODIUM
     Indication: PRODUCT USED FOR UNKNOWN INDICATION
     Dosage: UNK
     Route: 065
     Dates: end: 20210215
  31. XOLAIR [Suspect]
     Active Substance: OMALIZUMAB
     Indication: ASTHMA
     Dosage: 225 MG, BIW
     Route: 058
     Dates: start: 20171130
  32. XOLAIR [Suspect]
     Active Substance: OMALIZUMAB
     Dosage: 225 MG, BIW
     Route: 058
     Dates: start: 20181129
  33. PREDNISONE. [Suspect]
     Active Substance: PREDNISONE
     Indication: ASTHMA
     Dosage: 35 MG, QD
     Route: 048
     Dates: start: 2013
  34. PREDNISONE. [Suspect]
     Active Substance: PREDNISONE
     Dosage: 50 MG, QD (5 DAYS)
     Route: 048
  35. CLONAZEPAM. [Concomitant]
     Active Substance: CLONAZEPAM
     Indication: PRODUCT USED FOR UNKNOWN INDICATION
     Dosage: 1 DF, TID
     Route: 065
  36. ALENDRONATE [Concomitant]
     Active Substance: ALENDRONATE SODIUM
     Indication: PRODUCT USED FOR UNKNOWN INDICATION
     Dosage: 1 DF, UNK
     Route: 048
  37. XOLAIR [Suspect]
     Active Substance: OMALIZUMAB
     Dosage: 225 MG, BIW
     Route: 058
  38. NPH INSULIN [Concomitant]
     Active Substance: INSULIN BEEF
     Indication: PRODUCT USED FOR UNKNOWN INDICATION
     Dosage: UNK (UP FROM 14 TO 24UNITS DAILY)
     Route: 065
  39. XOLAIR [Suspect]
     Active Substance: OMALIZUMAB
     Dosage: UNK
     Route: 058
     Dates: start: 20180712
  40. XOLAIR [Suspect]
     Active Substance: OMALIZUMAB
     Dosage: 225 MG, BIW
     Route: 058
     Dates: start: 20190514
  41. XOLAIR [Suspect]
     Active Substance: OMALIZUMAB
     Dosage: 225 MG, BIW
     Route: 058
  42. XOLAIR [Suspect]
     Active Substance: OMALIZUMAB
     Dosage: 225 MG, BIW
     Route: 058
  43. ACETYLSALICYLIC ACID [Suspect]
     Active Substance: ASPIRIN
     Indication: PRODUCT USED FOR UNKNOWN INDICATION
     Dosage: UNK
     Route: 065
  44. PREDNISONE. [Suspect]
     Active Substance: PREDNISONE
     Dosage: 15 MG, QD
     Route: 065
     Dates: start: 20200316
  45. XOLAIR [Suspect]
     Active Substance: OMALIZUMAB
     Dosage: UNK
     Route: 058
     Dates: start: 20180125
  46. XOLAIR [Suspect]
     Active Substance: OMALIZUMAB
     Dosage: UNK
     Route: 058
     Dates: start: 201801
  47. XOLAIR [Suspect]
     Active Substance: OMALIZUMAB
     Dosage: 225 MG, BIW
     Route: 058
     Dates: start: 20180517
  48. XOLAIR [Suspect]
     Active Substance: OMALIZUMAB
     Dosage: 225 MG, BIW
     Route: 058
     Dates: start: 20190430

REACTIONS (92)
  - Polymyalgia rheumatica [Not Recovered/Not Resolved]
  - Hypoacusis [Recovered/Resolved]
  - Blister [Unknown]
  - Panic attack [Unknown]
  - Limb injury [Recovering/Resolving]
  - Hypersensitivity [Unknown]
  - Oropharyngeal pain [Recovering/Resolving]
  - Tunnel vision [Recovered/Resolved]
  - Sinus pain [Unknown]
  - Bronchitis [Unknown]
  - Obstructive airways disorder [Not Recovered/Not Resolved]
  - Pollakiuria [Not Recovered/Not Resolved]
  - Influenza like illness [Recovering/Resolving]
  - Pyrexia [Unknown]
  - Myopathy [Unknown]
  - Cellulitis [Unknown]
  - Blood iron decreased [Unknown]
  - Movement disorder [Unknown]
  - Ear pain [Recovering/Resolving]
  - Hypoaesthesia oral [Not Recovered/Not Resolved]
  - Gait disturbance [Unknown]
  - Ear congestion [Unknown]
  - Bladder pain [Unknown]
  - Fall [Unknown]
  - Dysuria [Unknown]
  - Product dose omission issue [Unknown]
  - Heart rate increased [Unknown]
  - Body temperature increased [Unknown]
  - Skin lesion [Unknown]
  - Back pain [Unknown]
  - Pain in extremity [Unknown]
  - Sinus disorder [Unknown]
  - Skin laceration [Not Recovered/Not Resolved]
  - Procedural pain [Recovering/Resolving]
  - Hypokinesia [Unknown]
  - Animal scratch [Unknown]
  - Decreased appetite [Not Recovered/Not Resolved]
  - Bronchiectasis [Recovering/Resolving]
  - Lower respiratory tract infection [Recovering/Resolving]
  - Oedema [Recovered/Resolved]
  - Feeling cold [Unknown]
  - Bronchopulmonary aspergillosis allergic [Unknown]
  - Muscle spasms [Unknown]
  - Blood urine present [Unknown]
  - Malaise [Unknown]
  - Illness [Unknown]
  - Hyperhidrosis [Not Recovered/Not Resolved]
  - Myalgia [Unknown]
  - Seizure [Unknown]
  - Cardiac failure [Recovering/Resolving]
  - Calculus urinary [Unknown]
  - Syncope [Recovered/Resolved]
  - Dysarthria [Recovered/Resolved]
  - Muscular weakness [Unknown]
  - Blood pressure systolic increased [Unknown]
  - Abdominal pain [Not Recovered/Not Resolved]
  - Migraine [Unknown]
  - Dyspnoea [Recovered/Resolved]
  - Urinary tract infection [Unknown]
  - Incorrect dose administered [Unknown]
  - Diarrhoea [Not Recovered/Not Resolved]
  - Pseudomonas infection [Unknown]
  - Pyelonephritis [Unknown]
  - Haemoglobin decreased [Unknown]
  - Abdominal distension [Not Recovered/Not Resolved]
  - Nasal polyps [Unknown]
  - Sinusitis [Unknown]
  - Paranasal sinus discomfort [Unknown]
  - Herpes zoster [Unknown]
  - Urinary tract discomfort [Not Recovered/Not Resolved]
  - Haematuria [Unknown]
  - Arthralgia [Not Recovered/Not Resolved]
  - Injection site pain [Recovered/Resolved]
  - Pain [Unknown]
  - Drug dependence [Unknown]
  - Flank pain [Unknown]
  - Pneumonia [Recovering/Resolving]
  - Chills [Not Recovered/Not Resolved]
  - Peripheral swelling [Recovered/Resolved]
  - Nephrolithiasis [Unknown]
  - Balance disorder [Recovered/Resolved]
  - Paraesthesia [Recovered/Resolved]
  - Cough [Recovered/Resolved]
  - Alveolar osteitis [Recovering/Resolving]
  - Wound secretion [Unknown]
  - Wound complication [Unknown]
  - Rales [Unknown]
  - Burning sensation [Unknown]
  - Joint injury [Unknown]
  - Influenza [Unknown]
  - Depression [Unknown]
  - Drug hypersensitivity [Unknown]

NARRATIVE: CASE EVENT DATE: 201710
